FAERS Safety Report 8522779-X (Version None)
Quarter: 2012Q3

REPORT INFORMATION
  Report Type: 
  Country: None (occurrence: None)
  Receive Date: 20120719
  Receipt Date: 20120717
  Transmission Date: 20120928
  Serious: Yes (Hospitalization)
  Sender: FDA-Public Use
  Company Number: IT-BAYER-2012-071581

PATIENT
  Age: 60 Year
  Sex: Male

DRUGS (2)
  1. CIPROFLOXACIN HCL [Suspect]
     Indication: SEPSIS
     Dosage: DAILY DOSE 800 MG
     Route: 042
     Dates: start: 20120306, end: 20120309
  2. MERREM [Concomitant]
     Indication: SEPSIS
     Dosage: DAILY DOSE 3000 MG
     Route: 042

REACTIONS (1)
  - ORAL MUCOSAL BLISTERING [None]
